FAERS Safety Report 5001168-9 (Version None)
Quarter: 2006Q2

REPORT INFORMATION
  Report Type: 
  Country: None (occurrence: None)
  Receive Date: 20060512
  Receipt Date: 20060502
  Transmission Date: 20061013
  Serious: Yes (Death)
  Sender: FDA-Public Use
  Company Number: SG-ABBOTT-06P-141-0332437-00

PATIENT
  Age: 69 Year
  Sex: Male

DRUGS (6)
  1. VALPROIC ACID IV [Suspect]
     Indication: STATUS EPILEPTICUS
     Route: 042
     Dates: start: 20051121, end: 20051123
  2. VALPROIC ACID [Suspect]
     Indication: STATUS EPILEPTICUS
     Route: 048
     Dates: start: 20051123, end: 20051210
  3. TICLOPIDINE [Suspect]
     Indication: MYOCARDIAL ISCHAEMIA
     Route: 048
     Dates: end: 20051202
  4. LANSOPRAZOLE [Concomitant]
     Indication: PROPHYLAXIS
     Route: 048
     Dates: start: 20051121
  5. LANSOPRAZOLE [Concomitant]
     Indication: STRESS
  6. METOPROLOL [Concomitant]
     Indication: ACUTE MYOCARDIAL INFARCTION
     Route: 048
     Dates: start: 20051128

REACTIONS (2)
  - RENAL FAILURE CHRONIC [None]
  - THROMBOCYTOPENIA [None]
